FAERS Safety Report 25231756 (Version 1)
Quarter: 2025Q2

REPORT INFORMATION
  Report Type: Spontaneous
  Country: US (occurrence: US)
  Receive Date: 20250423
  Receipt Date: 20250423
  Transmission Date: 20250716
  Serious: No
  Sender: ABBVIE
  Company Number: US-ABBVIE-6231581

PATIENT
  Age: 51 Year
  Sex: Female

DRUGS (2)
  1. POLYTRIM [Suspect]
     Active Substance: POLYMYXIN B SULFATE\TRIMETHOPRIM SULFATE
     Indication: Eye infection
     Route: 047
  2. COVID-19 VACCINE NOS [Suspect]
     Active Substance: COVID-19 VACCINE
     Indication: COVID-19 prophylaxis
     Route: 065

REACTIONS (3)
  - Arthralgia [Unknown]
  - Hypoaesthesia [Recovered/Resolved]
  - Fat tissue increased [Unknown]
